FAERS Safety Report 15455887 (Version 2)
Quarter: 2018Q4

REPORT INFORMATION
  Report Type: Spontaneous
  Country: DE (occurrence: DE)
  Receive Date: 20181002
  Receipt Date: 20181008
  Transmission Date: 20190204
  Serious: Yes (Death, Hospitalization)
  Sender: FDA-Public Use
  Company Number: DE-ALLERGAN-1847266US

PATIENT

DRUGS (2)
  1. QUETIAPINE. [Interacting]
     Active Substance: QUETIAPINE
     Indication: INTENTIONAL OVERDOSE
     Dosage: OVERDOSE: UNKNOWN DOSE
     Route: 048
  2. CITALOPRAM HYDROBROMIDE - BP [Suspect]
     Active Substance: CITALOPRAM HYDROBROMIDE
     Indication: INTENTIONAL OVERDOSE
     Dosage: OVERDOSE: UNKNOWN DOSE
     Route: 048

REACTIONS (8)
  - Cardiotoxicity [Fatal]
  - Completed suicide [Fatal]
  - Intentional overdose [Fatal]
  - Drug interaction [Unknown]
  - Cardiac arrest [Fatal]
  - Ventricular tachycardia [Fatal]
  - Seizure [Not Recovered/Not Resolved]
  - Electrocardiogram QRS complex prolonged [Unknown]
